FAERS Safety Report 9169065 (Version 1)
Quarter: 2013Q1

REPORT INFORMATION
  Report Type: Spontaneous
  Country: US (occurrence: None)
  Receive Date: 20130307
  Receipt Date: 20130307
  Transmission Date: 20140127
  Serious: Yes (Other)
  Sender: FDA-Public Use
  Company Number: 13-00788

PATIENT
  Age: 40 Year
  Sex: Male
  Weight: 67.13 kg

DRUGS (6)
  1. ASTHMANEFRIN [Suspect]
     Indication: ASTHMA
     Dosage: 2 INHALATIONS ONCE, 054
     Dates: start: 20130219
  2. NEPHRON PHARMACEUTICALS CORPORATION [Suspect]
  3. PROAIR [Concomitant]
  4. VITAMIN C [Concomitant]
  5. MAGNESIUM OXIDE 400MG [Concomitant]
  6. COD LIVER OIL [Concomitant]

REACTIONS (1)
  - Haemoptysis [None]
